FAERS Safety Report 22340624 (Version 2)
Quarter: 2024Q2

REPORT INFORMATION
  Report Type: Report from Study
  Country: US (occurrence: US)
  Receive Date: 20230518
  Receipt Date: 20240401
  Transmission Date: 20240716
  Serious: Yes (Other)
  Sender: FDA-Public Use
  Company Number: US-ABBVIE-4331768

PATIENT
  Age: 63 Year
  Sex: Male

DRUGS (4)
  1. SYNTHROID [Suspect]
     Active Substance: LEVOTHYROXINE SODIUM
     Indication: Product used for unknown indication
     Route: 048
  2. TEPEZZA [Suspect]
     Active Substance: TEPROTUMUMAB-TRBW
     Indication: Endocrine ophthalmopathy
     Dosage: INJECTION, POWDER, LYOPHILIZED, FOR SOLUTION
     Route: 042
     Dates: start: 2023
  3. TEPEZZA [Suspect]
     Active Substance: TEPROTUMUMAB-TRBW
     Indication: Endocrine ophthalmopathy
     Dosage: LAST ADMIN DATE- 2022
     Route: 065
     Dates: start: 20220112
  4. TEPEZZA [Suspect]
     Active Substance: TEPROTUMUMAB-TRBW
     Indication: Endocrine ophthalmopathy
     Dosage: INJECTION, POWDER, LYOPHILIZED, FOR SOLUTION
     Route: 042
     Dates: start: 20221201

REACTIONS (11)
  - Muscle spasms [Unknown]
  - Blood glucose increased [Not Recovered/Not Resolved]
  - Hair growth abnormal [Unknown]
  - Fatigue [Unknown]
  - Diplopia [Not Recovered/Not Resolved]
  - Alopecia [Unknown]
  - Exophthalmos [Unknown]
  - Therapeutic product effect incomplete [Unknown]
  - Deafness [Unknown]
  - Off label use [Unknown]
  - Periorbital swelling [Not Recovered/Not Resolved]

NARRATIVE: CASE EVENT DATE: 20240101
